FAERS Safety Report 7980646-4 (Version None)
Quarter: 2011Q4

REPORT INFORMATION
  Report Type: 
  Country: None (occurrence: None)
  Receive Date: 20111214
  Receipt Date: 20111202
  Transmission Date: 20120403
  Serious: Yes (Death, Other)
  Sender: FDA-Public Use
  Company Number: IT-CELGENEUS-083-21880-11081493

PATIENT
  Sex: Female
  Weight: 80 kg

DRUGS (12)
  1. REVLIMID [Suspect]
     Dosage: 10 MILLIGRAM
     Route: 048
     Dates: start: 20110812, end: 20110902
  2. PIPERACILLIN AND TAZOBACTAM [Concomitant]
  3. MERREM [Concomitant]
     Indication: INFECTION
     Route: 065
     Dates: start: 20110824, end: 20110901
  4. CYTARABINE [Suspect]
     Dosage: 38.2 MILLIGRAM
     Route: 058
     Dates: start: 20110812
  5. AMIODARONE HCL [Concomitant]
     Indication: CARDIAC DISORDER
     Dosage: 1/2 PP X 2
     Route: 065
     Dates: start: 20110730, end: 20110906
  6. FIDATO [Concomitant]
  7. MERREM [Concomitant]
  8. METHYLPREDNISOLONE [Concomitant]
     Route: 065
     Dates: start: 20110802, end: 20110824
  9. FIDATO [Concomitant]
     Indication: INFECTION
     Route: 065
     Dates: start: 20110808, end: 20110820
  10. PIPERACILLIN AND TAZOBACTAM [Concomitant]
     Indication: INFECTION
     Dosage: 13.5 GRAM
     Route: 065
     Dates: start: 20110820, end: 20110824
  11. DIFLUCAN [Concomitant]
     Route: 065
     Dates: start: 20110824, end: 20110901
  12. CYTARABINE [Suspect]
     Route: 058
     Dates: end: 20110826

REACTIONS (2)
  - NO THERAPEUTIC RESPONSE [None]
  - ACUTE MYELOID LEUKAEMIA [None]
